FAERS Safety Report 9190236 (Version 1)
Quarter: 2013Q1

REPORT INFORMATION
  Report Type: Spontaneous
  Country: US (occurrence: US)
  Receive Date: 20130326
  Receipt Date: 20130326
  Transmission Date: 20140127
  Serious: No
  Sender: FDA-Public Use
  Company Number: US-PFIZER INC-2013096256

PATIENT
  Age: 26 Year
  Sex: Female

DRUGS (5)
  1. ZOLOFT [Suspect]
     Indication: DEPRESSION
     Dosage: 50 MG, UNK
  2. ZOLOFT [Suspect]
     Indication: PREMENSTRUAL DYSPHORIC DISORDER
     Dosage: 100 MG, UNK
  3. ZOLOFT [Suspect]
     Dosage: 150 MG, UNK
  4. ZOLOFT [Suspect]
     Dosage: 200 MG, UNK
     Dates: end: 2013
  5. CLONIDINE [Concomitant]
     Indication: INSOMNIA
     Dosage: UNK (BETWEEN 0.1MG AND 0.5 MG), AS NEEDED

REACTIONS (7)
  - Dizziness [Not Recovered/Not Resolved]
  - Malaise [Unknown]
  - Nausea [Unknown]
  - Weight increased [Unknown]
  - Dyspnoea [Unknown]
  - Blood pressure decreased [Unknown]
  - Paraesthesia [Unknown]
